FAERS Safety Report 14901492 (Version 2)
Quarter: 2018Q2

REPORT INFORMATION
  Report Type: Spontaneous
  Country: CR (occurrence: CR)
  Receive Date: 20180516
  Receipt Date: 20180523
  Transmission Date: 20180711
  Serious: Yes (Other)
  Sender: FDA-Public Use
  Company Number: CR-BRISTOL-MYERS SQUIBB COMPANY-BMS-2018-043731

PATIENT
  Age: 86 Year
  Sex: Female

DRUGS (1)
  1. ELIQUIS [Suspect]
     Active Substance: APIXABAN
     Indication: PRODUCT USED FOR UNKNOWN INDICATION
     Dosage: 2.5 MG, UNK
     Route: 065

REACTIONS (2)
  - Haemorrhage intracranial [Unknown]
  - Cerebrovascular disorder [Unknown]

NARRATIVE: CASE EVENT DATE: 201805
